FAERS Safety Report 15050672 (Version 1)
Quarter: 2018Q2

REPORT INFORMATION
  Report Type: Spontaneous
  Country: US (occurrence: US)
  Receive Date: 20180622
  Receipt Date: 20180622
  Transmission Date: 20180711
  Serious: Yes (Life-Threatening, Other)
  Sender: FDA-Public Use
  Company Number: US-BAYER-2018-113122

PATIENT
  Age: 58 Year
  Sex: Female

DRUGS (8)
  1. TICAGRELOR. [Concomitant]
     Active Substance: TICAGRELOR
     Indication: ANTIPLATELET THERAPY
  2. AMOXICILLIN. [Concomitant]
     Active Substance: AMOXICILLIN
     Indication: PROPHYLAXIS
  3. HEPARIN [Concomitant]
     Active Substance: HEPARIN SODIUM
     Route: 042
  4. ECULIZUMAB [Concomitant]
     Active Substance: ECULIZUMAB
  5. COUMADIN [Concomitant]
     Active Substance: WARFARIN SODIUM
  6. MENINGOCOCCAL C VACCINE [Concomitant]
  7. CLOPIDOGREL [Concomitant]
     Active Substance: CLOPIDOGREL BISULFATE
     Indication: ANTIPLATELET THERAPY
     Dosage: UNK
  8. ACETYLSALICYLIC ACID({=100 MG) [Suspect]
     Active Substance: ASPIRIN
     Indication: ANTIPLATELET THERAPY

REACTIONS (6)
  - Vascular stent thrombosis [None]
  - Splenic thrombosis [None]
  - Hepatic vein thrombosis [None]
  - Cerebral thrombosis [None]
  - Haemorrhage intracranial [None]
  - Pulmonary thrombosis [None]
